FAERS Safety Report 9917205 (Version 3)
Quarter: 2014Q1

REPORT INFORMATION
  Report Type: Spontaneous
  Country: JP (occurrence: JP)
  Receive Date: 20140221
  Receipt Date: 20140305
  Transmission Date: 20141002
  Serious: Yes (Hospitalization, Other)
  Sender: FDA-Public Use
  Company Number: JP-PFIZER INC-2014043342

PATIENT
  Age: 51 Year
  Sex: Male

DRUGS (5)
  1. SOLANAX [Suspect]
     Dosage: UNK
     Route: 048
  2. ZITHROMAC [Suspect]
     Dosage: 600 MG, DAILY
     Route: 048
  3. MYCOBUTIN [Concomitant]
     Dosage: UNK
     Route: 048
     Dates: end: 20140130
  4. VIREAD [Concomitant]
     Dosage: UNK
     Route: 048
  5. EMTRIVA [Concomitant]
     Dosage: UNK
     Route: 048

REACTIONS (5)
  - HIV infection [Unknown]
  - Gamma-glutamyltransferase increased [Unknown]
  - Blood alkaline phosphatase increased [Unknown]
  - Asthenia [Unknown]
  - Neutrophil count decreased [Unknown]
